FAERS Safety Report 5122850-9 (Version None)
Quarter: 2006Q4

REPORT INFORMATION
  Report Type: 
  Country: None (occurrence: None)
  Receive Date: 20061004
  Receipt Date: 20060919
  Transmission Date: 20070319
  Serious: Yes (Death, Hospitalization)
  Sender: FDA-Public Use
  Company Number: 2006BI008206

PATIENT
  Age: 64 Year
  Sex: Male

DRUGS (3)
  1. ZEVALIN [Suspect]
     Indication: MANTLE CELL LYMPHOMA
     Dosage: 1X; IV
     Route: 042
     Dates: start: 20060223, end: 20060223
  2. ZEVALIN [Suspect]
     Indication: MANTLE CELL LYMPHOMA
     Dosage: 0.3 MCI/KG; 1X; IV
     Route: 042
     Dates: start: 20060302, end: 20060302
  3. RITUXIMAB [Concomitant]

REACTIONS (6)
  - ASPARTATE AMINOTRANSFERASE INCREASED [None]
  - CONTUSION [None]
  - FALL [None]
  - HAEMATOMA [None]
  - SUBDURAL HAEMATOMA [None]
  - THROMBOCYTOPENIA [None]
